FAERS Safety Report 25184594 (Version 1)
Quarter: 2025Q2

REPORT INFORMATION
  Report Type: Spontaneous
  Country: US (occurrence: US)
  Receive Date: 20250410
  Receipt Date: 20250410
  Transmission Date: 20250716
  Serious: No
  Sender: BIOGEN
  Company Number: US-BIOGEN-2022BI01143983

PATIENT
  Age: 65 Year
  Sex: Female

DRUGS (19)
  1. VUMERITY [Suspect]
     Active Substance: DIROXIMEL FUMARATE
     Indication: Multiple sclerosis
     Dosage: TAKE ONE CAPSULE (231MG) BY MOUTH TWICE DAILY FOR THE FIRST 7 DAYS
     Route: 050
     Dates: start: 20220727
  2. VUMERITY [Suspect]
     Active Substance: DIROXIMEL FUMARATE
     Dosage: TAKE 2 CAPSULES (462MG) BY MOUTH TWICE DAILY
     Route: 050
  3. LOSARTAN POTASSIUM [Concomitant]
     Active Substance: LOSARTAN POTASSIUM
     Route: 050
  4. OXYBUTYNIN CHLORIDE [Concomitant]
     Active Substance: OXYBUTYNIN CHLORIDE
     Route: 050
  5. GABAPENTIN [Concomitant]
     Active Substance: GABAPENTIN
     Route: 050
  6. MELOXICAM [Concomitant]
     Active Substance: MELOXICAM
     Route: 050
  7. RESTASIS [Concomitant]
     Active Substance: CYCLOSPORINE
     Route: 050
  8. TERBINAFINE HYDROCHLORIDE [Concomitant]
     Active Substance: TERBINAFINE HYDROCHLORIDE
     Route: 050
  9. CALCIUM [Concomitant]
     Active Substance: CALCIUM
     Route: 050
  10. NIACIN [Concomitant]
     Active Substance: NIACIN
     Route: 050
  11. FOLIC ACID [Concomitant]
     Active Substance: FOLIC ACID
     Route: 050
  12. GLUCOSAMINE [Concomitant]
     Active Substance: GLUCOSAMINE
     Route: 050
  13. FLAXSEED [Concomitant]
     Active Substance: FLAX SEED
     Route: 050
  14. BIOTIN [Concomitant]
     Active Substance: BIOTIN
     Route: 050
  15. VITAMIN D [Concomitant]
     Active Substance: VITAMIN D NOS
     Route: 050
  16. VITAMIN B12 [Concomitant]
     Active Substance: CYANOCOBALAMIN
     Route: 050
  17. VITAMIN E [Concomitant]
     Active Substance: .ALPHA.-TOCOPHEROL
     Route: 050
  18. MONTELUKAST SODIUM [Concomitant]
     Active Substance: MONTELUKAST SODIUM
     Route: 050
  19. OMEGA 3 [Concomitant]
     Active Substance: CAPSAICIN
     Route: 050

REACTIONS (5)
  - Product dose omission in error [Unknown]
  - Product dose omission issue [Unknown]
  - Blood urea increased [Unknown]
  - Diarrhoea [Unknown]
  - Flushing [Recovered/Resolved]

NARRATIVE: CASE EVENT DATE: 20220727
